FAERS Safety Report 4848704-0 (Version None)
Quarter: 2005Q4

REPORT INFORMATION
  Report Type: 
  Country: None (occurrence: None)
  Receive Date: 20051208
  Receipt Date: 20051128
  Transmission Date: 20060501
  Serious: Yes (Other)
  Sender: FDA-Public Use
  Company Number: DE-BRISTOL-MYERS SQUIBB COMPANY-13198007

PATIENT
  Age: 41 Year
  Sex: Male
  Weight: 86 kg

DRUGS (3)
  1. ABILIFY [Suspect]
     Indication: SCHIZOPHRENIA
     Dosage: 15 MG FROM 29-OCT TO 23-NOV-2004
     Dates: start: 20041029, end: 20041219
  2. LEVOPROMAZINE [Concomitant]
     Dosage: 200 MG, TAPERING 100 MG FROM 29-OCT-2004 TO 24-NOV-2004
     Dates: end: 20051124
  3. RISPERIDONE [Concomitant]

REACTIONS (4)
  - LOGORRHOEA [None]
  - MANIA [None]
  - RESTLESSNESS [None]
  - SLEEP DISORDER [None]
